FAERS Safety Report 5214374-5 (Version None)
Quarter: 2007Q1

REPORT INFORMATION
  Report Type: 
  Country: None (occurrence: None)
  Receive Date: 20070122
  Receipt Date: 20070112
  Transmission Date: 20070707
  Serious: Yes (Death, Hospitalization)
  Sender: FDA-Public Use
  Company Number: FR-GLAXOSMITHKLINE-B0454102A

PATIENT
  Age: 83 Year
  Sex: Male
  Weight: 83 kg

DRUGS (6)
  1. LAMICTAL [Suspect]
     Route: 048
  2. IMUREL [Suspect]
     Dosage: 150MG PER DAY
     Route: 048
     Dates: start: 20060701, end: 20060913
  3. ALLOPURINOL SODIUM [Concomitant]
     Route: 065
  4. TAHOR [Concomitant]
     Route: 065
  5. RENITEC [Concomitant]
     Route: 048
  6. CORTANCYL [Concomitant]
     Route: 048

REACTIONS (4)
  - DEATH [None]
  - MYELODYSPLASTIC SYNDROME [None]
  - PANCYTOPENIA [None]
  - PYREXIA [None]
